FAERS Safety Report 18463979 (Version 2)
Quarter: 2020Q4

REPORT INFORMATION
  Report Type: Spontaneous
  Country: AT (occurrence: AT)
  Receive Date: 20201104
  Receipt Date: 20201112
  Transmission Date: 20210114
  Serious: Yes (Other)
  Sender: FDA-Public Use
  Company Number: NVSC2020AT291313

PATIENT
  Sex: Female

DRUGS (1)
  1. PIQRAY [Suspect]
     Active Substance: ALPELISIB
     Indication: PRODUCT USED FOR UNKNOWN INDICATION
     Dosage: UNK
     Route: 065

REACTIONS (6)
  - Metastases to liver [Unknown]
  - Rash [Unknown]
  - Blood bilirubin increased [Unknown]
  - Vasoconstriction [Unknown]
  - Blood glucose increased [Unknown]
  - Oedema [Unknown]

NARRATIVE: CASE EVENT DATE: 20201027
